FAERS Safety Report 20191645 (Version 2)
Quarter: 2021Q4

REPORT INFORMATION
  Report Type: Spontaneous
  Country: US (occurrence: US)
  Receive Date: 20211216
  Receipt Date: 20211217
  Transmission Date: 20220303
  Serious: Yes (Other)
  Sender: FDA-Public Use
  Company Number: US-JNJFOC-20211213506

PATIENT
  Age: 7 Decade
  Sex: Female

DRUGS (1)
  1. NEUTROGENA COOLDRY SPORT SUNSCREEN BROAD SPECTRUM SPF 50 (AVOBENZONE\H [Suspect]
     Active Substance: AVOBENZONE\HOMOSALATE\OCTISALATE\OCTOCRYLENE
     Indication: Prophylaxis against solar radiation
     Dosage: SPRAYED FOR A COUPLE OF SECONDS AND RUB IT IN, EVERYDAY OR A COUPLE OF TIMES, EVERY HOUR WHEN PATIEN
     Route: 061

REACTIONS (1)
  - Skin cancer [Not Recovered/Not Resolved]

NARRATIVE: CASE EVENT DATE: 20210401
